FAERS Safety Report 5207710-7 (Version None)
Quarter: 2006Q4

REPORT INFORMATION
  Report Type: 
  Country: None (occurrence: None)
  Receive Date: 20061030
  Receipt Date: 20060816
  Transmission Date: 20070319
  Serious: No
  Sender: FDA-Public Use
  Company Number: 2006CT000691

PATIENT
  Age: 55 Year
  Sex: Female
  Weight: 54.4316 kg

DRUGS (11)
  1. VENTAVIS [Suspect]
     Indication: PULMONARY HYPERTENSION
     Dosage: 5 UG; 6 TO 9X/DAY; INH
     Route: 055
     Dates: start: 20060128
  2. NIFEDIPINE [Concomitant]
  3. CAPTOPRIL [Concomitant]
  4. PROZAC [Concomitant]
  5. LEVOXYL [Concomitant]
  6. ACIPHEX [Concomitant]
  7. DIGOXIN [Concomitant]
  8. WARFARIN SODIUM [Concomitant]
  9. ADVAIR DISKUS 100/50 [Concomitant]
  10. SILDENAFIL CITRATE [Concomitant]
  11. MEVACOR [Concomitant]

REACTIONS (1)
  - SKIN DISCOMFORT [None]
